FAERS Safety Report 7804869-X (Version None)
Quarter: 2011Q4

REPORT INFORMATION
  Report Type: 
  Country: None (occurrence: None)
  Receive Date: 20111010
  Receipt Date: 20111004
  Transmission Date: 20120403
  Serious: Yes (Other)
  Sender: FDA-Public Use
  Company Number: GB-MERCK-1109GBR00140

PATIENT
  Age: 64 Year
  Sex: Male
  Weight: 149 kg

DRUGS (8)
  1. GLICLAZIDE [Concomitant]
     Route: 048
  2. RANITIDINE [Concomitant]
     Route: 065
  3. SIMVASTATIN [Concomitant]
     Route: 048
  4. METFORMIN [Concomitant]
     Route: 048
  5. OLMESARTAN MEDOXOMIL [Concomitant]
     Route: 065
  6. OMEPRAZOLE [Concomitant]
     Route: 065
  7. JANUVIA [Suspect]
     Indication: TYPE 2 DIABETES MELLITUS
     Route: 048
     Dates: start: 20110601, end: 20110830
  8. INSULIN GLARGINE [Concomitant]
     Route: 058

REACTIONS (2)
  - ARTHRALGIA [None]
  - OEDEMA PERIPHERAL [None]
